FAERS Safety Report 10330311 (Version 2)
Quarter: 2014Q3

REPORT INFORMATION
  Report Type: Spontaneous
  Country: RS (occurrence: RS)
  Receive Date: 20140722
  Receipt Date: 20140722
  Transmission Date: 20150326
  Serious: Yes (Hospitalization)
  Sender: FDA-Public Use
  Company Number: PHHY2014RS084216

PATIENT
  Age: 18 Year
  Sex: Female

DRUGS (1)
  1. CHLORPROMAZINE [Suspect]
     Active Substance: CHLORPROMAZINE
     Dosage: 37.5 MG, TOTAL DAILY DOSE

REACTIONS (16)
  - Status epilepticus [Recovering/Resolving]
  - Muscle twitching [Recovered/Resolved]
  - Heterophoria [Recovered/Resolved]
  - Altered state of consciousness [Recovered/Resolved]
  - Tearfulness [Recovered/Resolved]
  - Phobia [Recovered/Resolved]
  - Strabismus [Recovered/Resolved]
  - Myoclonus [Unknown]
  - Epilepsy [Recovered/Resolved]
  - Staring [Recovered/Resolved]
  - Irritability [Recovered/Resolved]
  - Confusional state [Recovered/Resolved]
  - Abnormal behaviour [Unknown]
  - Depression [Recovered/Resolved]
  - Anxiety [Recovered/Resolved]
  - Psychotic disorder [Recovered/Resolved]
